FAERS Safety Report 4943935-3 (Version None)
Quarter: 2006Q1

REPORT INFORMATION
  Report Type: 
  Country: None (occurrence: None)
  Receive Date: 20060313
  Receipt Date: 20060313
  Transmission Date: 20060701
  Serious: Yes (Disabling, Other)
  Sender: FDA-Public Use
  Company Number: None

PATIENT
  Sex: Female
  Weight: 70.3075 kg

DRUGS (2)
  1. LEVAQUIN [Suspect]
     Indication: BRONCHITIS
     Dates: start: 20040610, end: 20040620
  2. LEVAQUIN [Suspect]
     Indication: COUGH
     Dates: start: 20040610, end: 20040620

REACTIONS (8)
  - HEART RATE INCREASED [None]
  - MIDDLE INSOMNIA [None]
  - MUSCULOSKELETAL STIFFNESS [None]
  - PAIN [None]
  - PALPITATIONS [None]
  - PERIARTHRITIS [None]
  - SHOULDER PAIN [None]
  - TINNITUS [None]
